FAERS Safety Report 8321473-8 (Version None)
Quarter: 2012Q2

REPORT INFORMATION
  Report Type: 
  Country: None (occurrence: None)
  Receive Date: 20120430
  Receipt Date: 20120430
  Transmission Date: 20120825
  Serious: Yes (Other)
  Sender: FDA-Public Use
  Company Number: None

PATIENT
  Sex: Female
  Weight: 79.378 kg

DRUGS (1)
  1. LYRICA [Suspect]
     Indication: MIGRAINE
     Dosage: 150 MG
     Route: 048
     Dates: start: 20100801, end: 20110121

REACTIONS (7)
  - SWELLING [None]
  - GAIT DISTURBANCE [None]
  - DYSARTHRIA [None]
  - SOMNOLENCE [None]
  - LOSS OF EMPLOYMENT [None]
  - MOVEMENT DISORDER [None]
  - MYALGIA [None]
